FAERS Safety Report 24276401 (Version 1)
Quarter: 2024Q3

REPORT INFORMATION
  Report Type: Spontaneous
  Country: IN (occurrence: IN)
  Receive Date: 20240903
  Receipt Date: 20240903
  Transmission Date: 20241017
  Serious: Yes (Other)
  Sender: SEBELA
  Company Number: IN-SEBELA IRELAND LIMITED-2024SEB00060

PATIENT
  Age: 28 Year
  Sex: Female

DRUGS (1)
  1. AZATHIOPRINE [Suspect]
     Active Substance: AZATHIOPRINE
     Indication: Systemic lupus erythematosus
     Dosage: UNK

REACTIONS (1)
  - Cholestasis [Recovered/Resolved]
